FAERS Safety Report 6858082-3 (Version None)
Quarter: 2010Q3

REPORT INFORMATION
  Report Type: 
  Country: None (occurrence: None)
  Receive Date: 20100719
  Receipt Date: 20100708
  Transmission Date: 20110219
  Serious: Yes (Hospitalization, Other)
  Sender: FDA-Public Use
  Company Number: US-PFIZER INC-2010085648

PATIENT
  Sex: Female
  Weight: 99.773 kg

DRUGS (5)
  1. TOVIAZ [Suspect]
     Indication: POLLAKIURIA
     Dosage: 4 MG, 1X/DAY
     Route: 048
     Dates: start: 20100301
  2. GLUCOPHAGE [Concomitant]
     Indication: DIABETES MELLITUS
     Dosage: 7.5 MG, 2X/DAY
     Route: 048
  3. GLYBURIDE [Concomitant]
     Indication: DIABETES MELLITUS
     Dosage: 2.5-5MG AS NEEDED DAILY
     Route: 048
  4. LISINOPRIL [Concomitant]
     Indication: HYPERTENSION
     Dosage: 20 MG, 1X/DAY
     Route: 048
  5. AMLODIPINE [Concomitant]
     Indication: HYPERTENSION
     Dosage: 5 MG, 1X/DAY
     Route: 048

REACTIONS (5)
  - CONSTIPATION [None]
  - DIZZINESS [None]
  - SURGERY [None]
  - VERTIGO [None]
  - VISION BLURRED [None]
